FAERS Safety Report 16059594 (Version 1)
Quarter: 2019Q1

REPORT INFORMATION
  Report Type: Spontaneous
  Country: US (occurrence: US)
  Receive Date: 20190311
  Receipt Date: 20190311
  Transmission Date: 20190418
  Serious: Yes (Other)
  Sender: FDA-Public Use
  Company Number: US-SHIRE-US201902413

PATIENT
  Age: 76 Year
  Sex: Female

DRUGS (1)
  1. NATPARA (PARATHYROID HORMONE) [Suspect]
     Active Substance: PARATHYROID HORMONE
     Indication: HYPOPARATHYROIDISM
     Dosage: 50 MICROGRAM, 1X/DAY:QD
     Route: 058
     Dates: start: 20151105

REACTIONS (4)
  - Off label use [Recovering/Resolving]
  - Inappropriate schedule of product administration [Recovering/Resolving]
  - Lung neoplasm malignant [Unknown]
  - Device defective [Unknown]

NARRATIVE: CASE EVENT DATE: 20190302
